FAERS Safety Report 24120753 (Version 1)
Quarter: 2024Q3

REPORT INFORMATION
  Report Type: Spontaneous
  Country: GB (occurrence: GB)
  Receive Date: 20240722
  Receipt Date: 20240722
  Transmission Date: 20241017
  Serious: Yes (Life-Threatening, Other)
  Sender: BAXTER
  Company Number: None

PATIENT
  Age: 59 Year
  Sex: Female

DRUGS (1)
  1. ONDANSETRON [Suspect]
     Active Substance: ONDANSETRON
     Dosage: (DOSAGE TEXT: 4 MG) (PHARMACEUTICAL DOSE: SOLUTION FOR INJECTION)
     Route: 065

REACTIONS (1)
  - Cardiac arrest [Recovered/Resolved]
